FAERS Safety Report 5846191-7 (Version None)
Quarter: 2008Q3

REPORT INFORMATION
  Report Type: 
  Country: None (occurrence: None)
  Receive Date: 20080813
  Receipt Date: 20080805
  Transmission Date: 20090109
  Serious: Yes (Other)
  Sender: FDA-Public Use
  Company Number: 2008SP015990

PATIENT
  Age: 47 Year
  Sex: Male

DRUGS (4)
  1. PEG-INTRON [Suspect]
     Indication: HEPATITIS C
     Dates: start: 20070917
  2. REBETOL [Suspect]
     Indication: HEPATITIS C
     Dosage: ;PO
     Route: 048
     Dates: start: 20070917
  3. MEGACE [Concomitant]
  4. NICOTINE [Concomitant]

REACTIONS (9)
  - CHRONIC OBSTRUCTIVE PULMONARY DISEASE [None]
  - DECREASED APPETITE [None]
  - FEELING ABNORMAL [None]
  - HEART RATE INCREASED [None]
  - HYPERSENSITIVITY [None]
  - MEMORY IMPAIRMENT [None]
  - PRURITUS [None]
  - ROAD TRAFFIC ACCIDENT [None]
  - WEIGHT DECREASED [None]
